FAERS Safety Report 5218515-5 (Version None)
Quarter: 2007Q1

REPORT INFORMATION
  Report Type: 
  Country: None (occurrence: None)
  Receive Date: 20061121
  Receipt Date: 20061004
  Transmission Date: 20070707
  Serious: No
  Sender: FDA-Public Use
  Company Number: TPA2006A01736

PATIENT
  Age: 75 Year
  Sex: Female
  Weight: 63.5036 kg

DRUGS (8)
  1. ROZEREM [Suspect]
     Indication: CIRCADIAN RHYTHM SLEEP DISORDER
     Dosage: 8 MG, HS, PER ORAL
     Route: 048
     Dates: start: 20060919, end: 20060920
  2. ROZEREM [Suspect]
     Indication: PROPHYLAXIS
     Dosage: 8 MG, HS, PER ORAL
     Route: 048
     Dates: start: 20060919, end: 20060920
  3. COZAAR [Concomitant]
  4. SEREVENT [Concomitant]
  5. NEXIUM [Concomitant]
  6. XALATAN [Concomitant]
  7. SPIRIVA [Concomitant]
  8. ALBUTEROL [Concomitant]

REACTIONS (2)
  - DEREALISATION [None]
  - HALLUCINATION [None]
